FAERS Safety Report 12440124 (Version 1)
Quarter: 2016Q2

REPORT INFORMATION
  Report Type: Report from Study
  Country: US (occurrence: US)
  Receive Date: 20160606
  Receipt Date: 20160606
  Transmission Date: 20160815
  Serious: No
  Sender: FDA-Public Use
  Company Number: US-AMGEN-USASL2015095930

PATIENT
  Age: 84 Year
  Sex: Male
  Weight: 94.15 kg

DRUGS (1)
  1. PROCRIT [Suspect]
     Active Substance: ERYTHROPOIETIN
     Indication: NEPHROGENIC ANAEMIA
     Dosage: 20000 UNK, QWK (LONG TERM)
     Route: 065

REACTIONS (7)
  - Blood iron abnormal [Unknown]
  - Iron binding capacity total abnormal [Unknown]
  - Haemoglobin abnormal [Unknown]
  - Haematocrit abnormal [Unknown]
  - Transferrin saturation increased [Unknown]
  - Blood creatinine abnormal [Unknown]
  - Blood urea abnormal [Unknown]

NARRATIVE: CASE EVENT DATE: 20150813
